FAERS Safety Report 20076176 (Version 1)
Quarter: 2021Q4

REPORT INFORMATION
  Report Type: Spontaneous
  Country: CA (occurrence: CA)
  Receive Date: 20211116
  Receipt Date: 20211116
  Transmission Date: 20220303
  Serious: Yes (Death)
  Sender: FDA-Public Use
  Company Number: CA-PFIZER INC-202101548006

PATIENT
  Age: 69 Year
  Sex: Male

DRUGS (9)
  1. REVATIO [Suspect]
     Active Substance: SILDENAFIL CITRATE
     Indication: Pulmonary arterial hypertension
     Dosage: 20 MG
     Route: 048
  2. OPSUMIT [Concomitant]
     Active Substance: MACITENTAN
  3. FUROSEMIDE [Concomitant]
     Active Substance: FUROSEMIDE
  4. AMLODIPINE [Concomitant]
     Active Substance: AMLODIPINE BESYLATE
  5. ROSUVASTATIN [Concomitant]
     Active Substance: ROSUVASTATIN
  6. PREDNISONE [Concomitant]
     Active Substance: PREDNISONE
  7. ALLOPURINOL [Concomitant]
     Active Substance: ALLOPURINOL
  8. BETAMETHASONE [Concomitant]
     Active Substance: BETAMETHASONE
  9. OMEPRAZOLE [Concomitant]
     Active Substance: OMEPRAZOLE

REACTIONS (1)
  - Death [Fatal]
